FAERS Safety Report 4319394-0 (Version None)
Quarter: 2004Q1

REPORT INFORMATION
  Report Type: 
  Country: None (occurrence: None)
  Receive Date: 20040316
  Receipt Date: 20040302
  Transmission Date: 20041129
  Serious: Yes (Other)
  Sender: FDA-Public Use
  Company Number: A0495868A

PATIENT
  Age: 44 Year
  Sex: Male
  Weight: 88.4061 kg

DRUGS (1)
  1. NICORETTE [Suspect]
     Indication: EX-SMOKER
     Dosage: 2 MG /NINE TIMES PER DAY/ TRANSB
     Route: 062
     Dates: start: 20021213

REACTIONS (9)
  - ANXIETY DISORDER [None]
  - DEPRESSION [None]
  - DISTURBANCE IN ATTENTION [None]
  - HYPERHIDROSIS [None]
  - MALAISE [None]
  - NICOTINE DEPENDENCE [None]
  - OVERDOSE [None]
  - SMOKER [None]
  - STOMACH DISCOMFORT [None]
